FAERS Safety Report 8620966-3 (Version None)
Quarter: 2012Q3

REPORT INFORMATION
  Report Type: 
  Country: None (occurrence: None)
  Receive Date: 20120824
  Receipt Date: 20120814
  Transmission Date: 20120928
  Serious: Yes (Hospitalization, Other)
  Sender: FDA-Public Use
  Company Number: US-ELI_LILLY_AND_COMPANY-US201104006396

PATIENT
  Sex: Female

DRUGS (14)
  1. LISINOPRIL [Concomitant]
     Dosage: 240 MG, UNK
  2. CARVEDILOL [Concomitant]
     Dosage: 12.5 MG, UNK
  3. ASPIRIN [Concomitant]
     Dosage: 81 MG, UNK
  4. VITAMIN D [Concomitant]
     Dosage: 2000 IU, UNK
  5. FORTEO [Suspect]
     Indication: OSTEOPOROSIS
     Dosage: 20 UG, QD
     Dates: start: 20110201, end: 20110426
  6. LISINOPRIL [Concomitant]
     Dosage: 120 MG, UNK
  7. SYNTHROID [Concomitant]
     Dosage: 150 UG, UNK
  8. OMEPRAZOLE [Concomitant]
     Dosage: 20 MG, UNK
  9. AMITRIPTYLINE HYDROCHLORIDE [Concomitant]
     Dosage: 50 MG, UNK
  10. HYDROCODONE BITARTRATE [Concomitant]
     Dosage: UNK, PRN
  11. FORTEO [Suspect]
     Dosage: 20 UG, QD
  12. CARVEDILOL [Concomitant]
     Dosage: 12.5 MG, BID
  13. ALPRAZOLAM [Concomitant]
     Dosage: 0.25 MG, UNK
  14. CALCIUM [Concomitant]
     Dosage: UNK

REACTIONS (11)
  - ABDOMINAL PAIN UPPER [None]
  - INTESTINAL OBSTRUCTION [None]
  - COLON CANCER [None]
  - HEAD INJURY [None]
  - HYPERTENSION [None]
  - HAEMORRHAGE [None]
  - FALL [None]
  - SPEECH DISORDER [None]
  - ASTHENIA [None]
  - HAEMATOCHEZIA [None]
  - THROAT LESION [None]
